FAERS Safety Report 19399838 (Version 2)
Quarter: 2022Q1

REPORT INFORMATION
  Report Type: Spontaneous
  Country: US (occurrence: US)
  Receive Date: 20210610
  Receipt Date: 20220214
  Transmission Date: 20220423
  Serious: No
  Sender: FDA-Public Use
  Company Number: US-PFIZER INC-2021493144

PATIENT
  Age: 56 Year
  Sex: Female

DRUGS (12)
  1. XELJANZ [Suspect]
     Active Substance: TOFACITINIB CITRATE
     Indication: Psoriatic arthropathy
     Dosage: 5 MG, DAILY
     Dates: start: 20210215
  2. XELJANZ [Suspect]
     Active Substance: TOFACITINIB CITRATE
     Dosage: 5 MG, 2X/DAY
     Route: 048
     Dates: start: 20210215
  3. ALLEGRA D-12 HOUR [Concomitant]
     Active Substance: FEXOFENADINE HYDROCHLORIDE\PSEUDOEPHEDRINE HYDROCHLORIDE
     Dosage: UNK
  4. CALCIUM\CHOLECALCIFEROL [Concomitant]
     Active Substance: CALCIUM\CHOLECALCIFEROL
     Dosage: UNK (CALCIUM + D3 600 MG-500 TABLET ER)
  5. CLOBEX [CLOBETASOL PROPIONATE] [Concomitant]
     Dosage: UNK
  6. ESCITALOPRAM OXALATE [Concomitant]
     Active Substance: ESCITALOPRAM OXALATE
     Dosage: 10 MG
  7. HYDROXYCHLOROQUINE SULFATE [Concomitant]
     Active Substance: HYDROXYCHLOROQUINE SULFATE
     Dosage: UNK
  8. IMVEXXY [Concomitant]
     Active Substance: ESTRADIOL
     Dosage: 10 UG (IMVEXXY 10 MCG INSERT)
  9. MAGNESIUM [Concomitant]
     Active Substance: MAGNESIUM
     Dosage: 100 MG
  10. METHOTREXATE [Concomitant]
     Active Substance: METHOTREXATE
     Dosage: 1 G (METHOTREXATE 1 G VIAL)
  11. OMEPRAZOLE [Concomitant]
     Active Substance: OMEPRAZOLE
     Dosage: UNK (OMEPRAZOLE 100 % POWDER)
  12. XIIDRA [Concomitant]
     Active Substance: LIFITEGRAST
     Dosage: UNK

REACTIONS (2)
  - Gastrooesophageal reflux disease [Unknown]
  - Diarrhoea [Unknown]
